FAERS Safety Report 22379666 (Version 1)
Quarter: 2023Q2

REPORT INFORMATION
  Report Type: Spontaneous
  Country: US (occurrence: US)
  Receive Date: 20230529
  Receipt Date: 20230529
  Transmission Date: 20230722
  Serious: No
  Sender: FDA-Public Use
  Company Number: US-SA-SAC20230526001529

PATIENT
  Age: 60 Year
  Sex: Male
  Weight: 93.44 kg

DRUGS (1)
  1. DUPIXENT [Suspect]
     Active Substance: DUPILUMAB
     Indication: Dermatitis atopic
     Dosage: 300 MG, QOW
     Route: 058
     Dates: start: 20220531

REACTIONS (1)
  - Ankle operation [Unknown]

NARRATIVE: CASE EVENT DATE: 20230201
